FAERS Safety Report 7425321 (Version 5)
Quarter: 2013Q3

REPORT INFORMATION
  Report Type: Report from Study
  Country: NL (occurrence: NL)
  Receive Date: 20100618
  Receipt Date: 20130722
  Transmission Date: 20140515
  Serious: Yes (Hospitalization)
  Sender: FDA-Public Use
  Company Number: NL-GILEAD-E2B_00000749

PATIENT
  Age: 62 Year
  Sex: Male

DRUGS (8)
  1. AMBRISENTAN [Suspect]
     Indication: PULMONARY ARTERIAL HYPERTENSION
     Dosage: 5 MG, QD
     Route: 048
     Dates: start: 20091216
  2. LANOXIN [Concomitant]
  3. VERAPAMIL [Concomitant]
     Dosage: UNK
  4. METOPROLOL [Concomitant]
  5. HUMALOG INSULIN [Concomitant]
  6. FUROSEMIDE [Concomitant]
  7. SPIRONOLACTONE [Concomitant]
     Dosage: UNK
  8. ETALPHA [Concomitant]

REACTIONS (1)
  - Localised oedema [Recovered/Resolved with Sequelae]
